FAERS Safety Report 14708204 (Version 1)
Quarter: 2018Q2

REPORT INFORMATION
  Report Type: Spontaneous
  Country: US (occurrence: US)
  Receive Date: 20180402
  Receipt Date: 20180402
  Transmission Date: 20180711
  Serious: No
  Sender: FDA-Public Use
  Company Number: None

PATIENT

DRUGS (1)
  1. KRAKEN KRATOM [Suspect]
     Active Substance: MITRAGYNINE\HERBALS
     Dates: start: 201711, end: 201711

REACTIONS (3)
  - Salmonellosis [None]
  - Product use issue [None]
  - Myalgia [None]

NARRATIVE: CASE EVENT DATE: 20171116
